FAERS Safety Report 8860986 (Version 5)
Quarter: 2013Q3

REPORT INFORMATION
  Report Type: Spontaneous
  Country: US (occurrence: US)
  Receive Date: 20121025
  Receipt Date: 20130816
  Transmission Date: 20140515
  Serious: Yes (Hospitalization, Disabling, Other)
  Sender: FDA-Public Use
  Company Number: US-009507513-1210USA005992

PATIENT
  Sex: Female

DRUGS (7)
  1. FOSAMAX [Suspect]
     Indication: OSTEOPOROSIS
     Dosage: UNK, BID
     Dates: start: 19990222
  2. FOSAMAX [Suspect]
     Indication: OSTEOPENIA
     Dosage: 10MG, QD
     Route: 048
     Dates: start: 19990222, end: 19990526
  3. FOSAMAX [Suspect]
     Dosage: 10 MG, QD
     Route: 048
     Dates: start: 20000222, end: 20040904
  4. FOSAMAX [Suspect]
     Dosage: 70 MG, QW
     Route: 048
     Dates: start: 20060121, end: 20070722
  5. ZOCOR [Concomitant]
     Indication: BLOOD CHOLESTEROL INCREASED
     Dosage: UNK
     Dates: start: 2004
  6. ALENDRONATE SODIUM [Suspect]
     Indication: OSTEOPOROSIS
     Dosage: 70 MG, UNK
     Route: 048
     Dates: start: 20100802, end: 20101025
  7. ALENDRONATE SODIUM [Suspect]
     Dosage: 70 MG, UNK
     Route: 048
     Dates: start: 20111003, end: 20111226

REACTIONS (38)
  - Femur fracture [Not Recovered/Not Resolved]
  - Intramedullary rod insertion [Not Recovered/Not Resolved]
  - Fall [Unknown]
  - Pelvic fracture [Unknown]
  - Fall [Unknown]
  - Tooth extraction [Unknown]
  - Denture wearer [Unknown]
  - Dementia Alzheimer^s type [Not Recovered/Not Resolved]
  - Anxiety [Unknown]
  - Blood cholesterol increased [Unknown]
  - Spinal column injury [Unknown]
  - Vitamin D deficiency [Unknown]
  - Breast tenderness [Unknown]
  - Pollakiuria [Unknown]
  - Nervousness [Unknown]
  - Spinal osteoarthritis [Unknown]
  - Scoliosis [Unknown]
  - Excoriation [Unknown]
  - Laceration [Unknown]
  - Hyponatraemia [Recovered/Resolved]
  - Depression [Unknown]
  - Leukocytosis [Unknown]
  - Fractured sacrum [Unknown]
  - Gastrointestinal haemorrhage [Unknown]
  - Hyperlipidaemia [Unknown]
  - Cerebrovascular accident [Unknown]
  - Gastrooesophageal reflux disease [Unknown]
  - Skin lesion [Unknown]
  - Hypoxia [Unknown]
  - Drug administration error [Unknown]
  - Anaemia [Unknown]
  - Transient ischaemic attack [Unknown]
  - Arthritis [Unknown]
  - Drug ineffective [Unknown]
  - Arthralgia [Unknown]
  - Bone lesion [Unknown]
  - Osteoarthritis [Unknown]
  - Osteoarthritis [Unknown]
